FAERS Safety Report 24369629 (Version 1)
Quarter: 2024Q3

REPORT INFORMATION
  Report Type: Report from Study
  Country: US (occurrence: US)
  Receive Date: 20240927
  Receipt Date: 20240927
  Transmission Date: 20241017
  Serious: No
  Sender: ROCHE
  Company Number: US-ROCHE-3507671

PATIENT
  Age: 84 Year
  Sex: Male
  Weight: 74.84 kg

DRUGS (1)
  1. LUCENTIS [Suspect]
     Active Substance: RANIBIZUMAB
     Indication: Product used for unknown indication
     Route: 065
     Dates: start: 202312, end: 20240206

REACTIONS (2)
  - Drug ineffective [Unknown]
  - No adverse event [Unknown]
